FAERS Safety Report 8127648-5 (Version None)
Quarter: 2011Q4

REPORT INFORMATION
  Report Type: 
  Country: None (occurrence: None)
  Receive Date: 20111227
  Receipt Date: 20110906
  Transmission Date: 20120403
  Serious: No
  Sender: FDA-Public Use
  Company Number: PHHY2011US68178

PATIENT
  Age: 43 Year
  Sex: Female
  Weight: 51 kg

DRUGS (4)
  1. NALTREXONE HYDROCHLORIDE [Concomitant]
  2. MULTI-VITAMINS (CALCIUM PANTOTHENATE, FOLIC ACID, VITAMINS NOS) [Concomitant]
  3. GILENYA [Suspect]
     Indication: MULTIPLE SCLEROSIS
     Dosage: 0.5 MG, QD, ORAL
     Route: 048
     Dates: start: 20110608
  4. FAMPRIDINE (FAMPRIDINE) [Concomitant]

REACTIONS (3)
  - BALANCE DISORDER [None]
  - PARAESTHESIA [None]
  - HYPOAESTHESIA [None]
